FAERS Safety Report 4758543-7 (Version None)
Quarter: 2005Q3

REPORT INFORMATION
  Report Type: 
  Country: None (occurrence: None)
  Receive Date: 20050901
  Receipt Date: 20050613
  Transmission Date: 20060218
  Serious: Yes (Other)
  Sender: FDA-Public Use
  Company Number: PHEH2005US06644

PATIENT
  Age: 55 Year
  Sex: Male

DRUGS (6)
  1. ZOMETA [Suspect]
     Indication: MULTIPLE MYELOMA
     Dosage: 4 MG, QMO
     Route: 042
     Dates: start: 20030317, end: 20050603
  2. CYTOXAN [Concomitant]
     Dates: start: 20031001, end: 20040201
  3. VELCADE [Concomitant]
     Dates: start: 20040318, end: 20040801
  4. VINCRISTINE + ADRIAMYCIN + DEXAMETHASONE [Concomitant]
     Dosage: PART OF VAD
     Dates: start: 20030501, end: 20030701
  5. THALIDOMIDE [Concomitant]
     Dates: start: 20030801, end: 20031001
  6. DECADRON /CAN/ [Concomitant]
     Dates: start: 20031001, end: 20040201

REACTIONS (7)
  - ASEPTIC NECROSIS BONE [None]
  - BONE DISORDER [None]
  - BONE PAIN [None]
  - IMPAIRED HEALING [None]
  - MALIGNANT NEOPLASM PROGRESSION [None]
  - SOFT TISSUE INFECTION [None]
  - STAPHYLOCOCCAL INFECTION [None]
